FAERS Safety Report 10060448 (Version 3)
Quarter: 2014Q2

REPORT INFORMATION
  Report Type: Spontaneous
  Country: JP (occurrence: JP)
  Receive Date: 20140404
  Receipt Date: 20140429
  Transmission Date: 20141212
  Serious: Yes (Death, Other)
  Sender: FDA-Public Use
  Company Number: JP-PFIZER INC-2014094460

PATIENT
  Age: 65 Year
  Sex: Female

DRUGS (2)
  1. ALDACTONE A [Suspect]
     Dosage: UNK
     Route: 048
     Dates: start: 201212, end: 20130104
  2. ZOSYN [Suspect]
     Dosage: UNK
     Dates: start: 20130101, end: 20130104

REACTIONS (4)
  - Toxic epidermal necrolysis [Fatal]
  - Sepsis [Fatal]
  - Endocarditis [Fatal]
  - Cerebral infarction [Fatal]
